FAERS Safety Report 23951094 (Version 1)
Quarter: 2024Q2

REPORT INFORMATION
  Report Type: Spontaneous
  Country: CN (occurrence: CN)
  Receive Date: 20240607
  Receipt Date: 20240607
  Transmission Date: 20240716
  Serious: Yes (Hospitalization)
  Sender: FDA-Public Use
  Company Number: CN-Merck Healthcare KGaA-2024029329

PATIENT
  Age: 75 Year
  Sex: Male
  Weight: 72 kg

DRUGS (3)
  1. ERBITUX [Suspect]
     Active Substance: CETUXIMAB
     Indication: Colon cancer
     Dosage: 900 MG, 2/M (1 EVERY 14 DAY)
     Route: 041
     Dates: start: 20240220, end: 20240516
  2. IRINOTECAN HYDROCHLORIDE [Suspect]
     Active Substance: IRINOTECAN HYDROCHLORIDE
     Indication: Colon cancer
     Dosage: 75 MG, 2/M (1 EVERY 14 DAY)
     Route: 041
     Dates: start: 20240220, end: 20240516
  3. SODIUM CHLORIDE [Concomitant]
     Active Substance: SODIUM CHLORIDE
     Indication: Medication dilution
     Dosage: 250 ML, 2/M (1 EVERY 14 DAY)
     Route: 041
     Dates: start: 20240516, end: 20240516

REACTIONS (3)
  - Cholestatic liver injury [Not Recovered/Not Resolved]
  - Diarrhoea [Not Recovered/Not Resolved]
  - Yellow skin [Not Recovered/Not Resolved]

NARRATIVE: CASE EVENT DATE: 20240520
